FAERS Safety Report 22621006 (Version 1)
Quarter: 2023Q2

REPORT INFORMATION
  Report Type: Spontaneous
  Country: US (occurrence: None)
  Receive Date: 20230616
  Receipt Date: 20230616
  Transmission Date: 20230722
  Serious: No
  Sender: FDA-Public Use
  Company Number: None

PATIENT
  Sex: Female

DRUGS (3)
  1. AMBRISENTAN [Suspect]
     Active Substance: AMBRISENTAN
     Indication: Pulmonary arterial hypertension
     Dosage: 5 MG DAILY BY MOUTH?
     Route: 048
     Dates: start: 202305
  2. SILDENAFIL CITRATE [Suspect]
     Active Substance: SILDENAFIL CITRATE
     Indication: Pulmonary arterial hypertension
     Dosage: 20 MG THREE TIMES DAILY BY MOUTH?
     Route: 048
     Dates: start: 202305
  3. TYVASO [Suspect]
     Active Substance: TREPROSTINIL

REACTIONS (8)
  - Cough [None]
  - Headache [None]
  - Nausea [None]
  - Fluid retention [None]
  - Dyspnoea [None]
  - Weight increased [None]
  - Pulmonary oedema [None]
  - Pericardial effusion [None]
